FAERS Safety Report 14837917 (Version 2)
Quarter: 2018Q4

REPORT INFORMATION
  Report Type: Spontaneous
  Country: DE (occurrence: DE)
  Receive Date: 20180502
  Receipt Date: 20181105
  Transmission Date: 20190204
  Serious: Yes (Death, Hospitalization, Other)
  Sender: FDA-Public Use
  Company Number: DE-B.I. PHARMACEUTICALS,INC./RIDGEFIELD-2018-BI-023022

PATIENT
  Age: 53 Year
  Sex: Female

DRUGS (1)
  1. GILOTRIF [Suspect]
     Active Substance: AFATINIB
     Indication: ADENOCARCINOMA
     Route: 065
     Dates: start: 201604

REACTIONS (10)
  - Pneumonia [Unknown]
  - Pancytopenia [Unknown]
  - Death [Fatal]
  - Malignant neoplasm progression [Unknown]
  - Metastases to lung [Unknown]
  - Malignant neoplasm progression [Unknown]
  - Malignant neoplasm progression [Unknown]
  - Malignant neoplasm progression [Recovered/Resolved]
  - General physical health deterioration [Unknown]
  - Metastases to liver [Unknown]

NARRATIVE: CASE EVENT DATE: 201611
